FAERS Safety Report 5618190-1 (Version None)
Quarter: 2008Q1

REPORT INFORMATION
  Report Type: 
  Country: None (occurrence: None)
  Receive Date: 20080207
  Receipt Date: 20071126
  Transmission Date: 20080703
  Serious: No
  Sender: FDA-Public Use
  Company Number: A0696652A

PATIENT

DRUGS (1)
  1. PAXIL [Suspect]
     Indication: DEPRESSION
     Route: 065
     Dates: start: 20000101

REACTIONS (1)
  - SOMNOLENCE [None]
